FAERS Safety Report 23552479 (Version 1)
Quarter: 2024Q1

REPORT INFORMATION
  Report Type: Report from Study
  Country: US (occurrence: US)
  Receive Date: 20240222
  Receipt Date: 20240222
  Transmission Date: 20240410
  Serious: No
  Sender: FDA-Public Use
  Company Number: US-AstraZeneca-CH-00567186A

PATIENT
  Sex: Female

DRUGS (1)
  1. STRENSIQ [Suspect]
     Active Substance: ASFOTASE ALFA
     Indication: Product used for unknown indication
     Dosage: UNK
     Route: 065

REACTIONS (8)
  - Loose tooth [Unknown]
  - Thyroid disorder [Unknown]
  - Gait disturbance [Unknown]
  - Pain in extremity [Unknown]
  - Grip strength decreased [Unknown]
  - Gout [Unknown]
  - Peripheral swelling [Unknown]
  - Pain [Unknown]
